FAERS Safety Report 17481102 (Version 1)
Quarter: 2020Q1

REPORT INFORMATION
  Report Type: Report from Study
  Country: None (occurrence: US)
  Receive Date: 20200302
  Receipt Date: 20200302
  Transmission Date: 20200409
  Serious: Yes (Hospitalization, Other)
  Sender: FDA-Public Use
  Company Number: US-ABBVIE-20K-163-3297443-00

PATIENT
  Sex: Male

DRUGS (1)
  1. HUMIRA [Suspect]
     Active Substance: ADALIMUMAB
     Indication: RHEUMATOID ARTHRITIS
     Route: 058

REACTIONS (11)
  - Cardioversion [Unknown]
  - Nephrolithiasis [Unknown]
  - Internal haemorrhage [Unknown]
  - Pain in extremity [Unknown]
  - Shoulder operation [Unknown]
  - Elbow operation [Unknown]
  - Rotator cuff syndrome [Unknown]
  - Cardioversion [Unknown]
  - Cataract [Unknown]
  - Cardioversion [Unknown]
  - Renal cyst [Unknown]

NARRATIVE: CASE EVENT DATE: 2017
